FAERS Safety Report 23889847 (Version 1)
Quarter: 2024Q2

REPORT INFORMATION
  Report Type: Spontaneous
  Country: CN (occurrence: CN)
  Receive Date: 20240523
  Receipt Date: 20240523
  Transmission Date: 20240716
  Serious: Yes (Other)
  Sender: FDA-Public Use
  Company Number: CN-B.Braun Medical Inc.-2157351

PATIENT
  Age: 82 Year
  Sex: Male
  Weight: 49 kg

DRUGS (1)
  1. NUTRILIPID I.V. FAT EMULSION [Suspect]
     Active Substance: SOYBEAN OIL
     Indication: Oesophageal carcinoma
     Route: 042

REACTIONS (2)
  - Hyperpyrexia [Recovered/Resolved]
  - Asthenia [Recovered/Resolved]
